FAERS Safety Report 8611332-5 (Version None)
Quarter: 2012Q3

REPORT INFORMATION
  Report Type: 
  Country: None (occurrence: None)
  Receive Date: 20120807
  Receipt Date: 20120726
  Transmission Date: 20120928
  Serious: Yes (Disabling, Other)
  Sender: FDA-Public Use
  Company Number: ACO_26233_2011

PATIENT
  Age: 32 Year
  Sex: Female
  Weight: 45.4 kg

DRUGS (6)
  1. SEROQUEL [Concomitant]
  2. WELLBUTRIN [Concomitant]
  3. AMPYRA [Suspect]
     Indication: GAIT DISTURBANCE
     Dosage: 10 MG, BID, ORAL, 10 MG, BID, ORAL
     Route: 048
     Dates: start: 20110501, end: 20110601
  4. AMPYRA [Suspect]
     Indication: GAIT DISTURBANCE
     Dosage: 10 MG, BID, ORAL, 10 MG, BID, ORAL
     Route: 048
     Dates: start: 20110701, end: 20110701
  5. TYSABRI [Concomitant]
  6. LITHIUM CARBONATE [Concomitant]

REACTIONS (3)
  - NAUSEA [None]
  - BEDRIDDEN [None]
  - MALAISE [None]
